FAERS Safety Report 12358448 (Version 2)
Quarter: 2016Q2

REPORT INFORMATION
  Report Type: Spontaneous
  Country: US (occurrence: US)
  Receive Date: 20160512
  Receipt Date: 20160520
  Transmission Date: 20160815
  Serious: No
  Sender: FDA-Public Use
  Company Number: US-PFIZER INC-2016228618

PATIENT
  Age: 59 Year
  Sex: Female
  Weight: 68.4 kg

DRUGS (1)
  1. ALTACE [Suspect]
     Active Substance: RAMIPRIL

REACTIONS (2)
  - Blood pressure inadequately controlled [Unknown]
  - Drug ineffective [Unknown]
